FAERS Safety Report 8292355-5 (Version None)
Quarter: 2012Q2

REPORT INFORMATION
  Report Type: 
  Country: None (occurrence: None)
  Receive Date: 20120417
  Receipt Date: 20111005
  Transmission Date: 20120825
  Serious: No
  Sender: FDA-Public Use
  Company Number: US-BAUSCH-2011BL006760

PATIENT
  Age: 42 Year
  Sex: Female

DRUGS (1)
  1. FLUNISOLIDE [Suspect]
     Route: 045
     Dates: start: 20110901, end: 20110901

REACTIONS (4)
  - OFF LABEL USE [None]
  - NASAL DISCOMFORT [None]
  - LACRIMATION INCREASED [None]
  - RHINALGIA [None]
